FAERS Safety Report 5498496-X (Version None)
Quarter: 2007Q4

REPORT INFORMATION
  Report Type: 
  Country: None (occurrence: None)
  Receive Date: 20071025
  Receipt Date: 20071025
  Transmission Date: 20080405
  Serious: Yes (Other)
  Sender: FDA-Public Use
  Company Number: None

PATIENT
  Sex: Male
  Weight: 68.0396 kg

DRUGS (2)
  1. SOTRET [Suspect]
     Indication: ACNE
     Dosage: 40   QPM PO
     Route: 048
     Dates: start: 20061201, end: 20070308
  2. SOTRET [Suspect]
     Dosage: 30 QAM PO
     Route: 048
     Dates: start: 20061201, end: 20070308

REACTIONS (1)
  - BLOOD TRIGLYCERIDES INCREASED [None]
